FAERS Safety Report 9857230 (Version 2)
Quarter: 2014Q1

REPORT INFORMATION
  Report Type: Report from Study
  Country: JP (occurrence: JP)
  Receive Date: 20140130
  Receipt Date: 20140324
  Transmission Date: 20141002
  Serious: Yes (Other)
  Sender: FDA-Public Use
  Company Number: JP-BAXTER-2014BAX003868

PATIENT
  Age: 13 Year
  Sex: Male

DRUGS (2)
  1. FEIBA FOR INJECTION 1000 [Suspect]
     Indication: RENAL HAEMORRHAGE
     Route: 065
  2. NOVOSEVEN [Suspect]
     Indication: RENAL HAEMORRHAGE
     Route: 065

REACTIONS (3)
  - Haemorrhage urinary tract [Recovering/Resolving]
  - Pelvi-ureteric obstruction [Recovering/Resolving]
  - Back pain [Recovering/Resolving]
